FAERS Safety Report 24527666 (Version 1)
Quarter: 2024Q4

REPORT INFORMATION
  Report Type: Spontaneous
  Country: KR (occurrence: KR)
  Receive Date: 20241021
  Receipt Date: 20241021
  Transmission Date: 20250115
  Serious: Yes (Other)
  Sender: ASTELLAS
  Company Number: KR-ASTELLAS-2024-AER-012907

PATIENT
  Age: 65 Year
  Sex: Male

DRUGS (5)
  1. HARNAL [Suspect]
     Active Substance: TAMSULOSIN HYDROCHLORIDE
     Indication: Benign prostatic hyperplasia
     Dosage: ONE TABLET TO BE TAKEN DAILY BEFORE BED (AFTER DINNER)
     Route: 065
  2. HARNAL [Suspect]
     Active Substance: TAMSULOSIN HYDROCHLORIDE
     Dosage: ONE TABLET ONCE DAILY
     Route: 065
     Dates: start: 202410
  3. HARNAL [Suspect]
     Active Substance: TAMSULOSIN HYDROCHLORIDE
     Dosage: SKIPS THE MEDICATION
     Route: 065
  4. MIRABEGRON [Suspect]
     Active Substance: MIRABEGRON
     Indication: Benign prostatic hyperplasia
     Dosage: ONE TABLET TO BE TAKEN DAILY BEFORE BED (AFTER DINNER)
     Route: 065
     Dates: start: 202410, end: 202410
  5. MIRABEGRON [Suspect]
     Active Substance: MIRABEGRON
     Dosage: TOOK ONE TABLET AT LUNCH TIME TODAY
     Route: 065
     Dates: start: 20241015

REACTIONS (9)
  - Erectile dysfunction [Unknown]
  - Penile swelling [Unknown]
  - Abdominal discomfort [Not Recovered/Not Resolved]
  - Irritability [Unknown]
  - Dysuria [Unknown]
  - Nocturia [Unknown]
  - Insomnia [Unknown]
  - Drug intolerance [Unknown]
  - Product use in unapproved indication [Unknown]
